FAERS Safety Report 14635875 (Version 1)
Quarter: 2018Q1

REPORT INFORMATION
  Report Type: Spontaneous
  Country: DE (occurrence: DE)
  Receive Date: 20180314
  Receipt Date: 20180314
  Transmission Date: 20180509
  Serious: Yes (Hospitalization)
  Sender: FDA-Public Use
  Company Number: DE-AUROBINDO-AUR-APL-2018-014111

PATIENT
  Age: 16 Year
  Sex: Male
  Weight: 60 kg

DRUGS (3)
  1. BISOPROLOL [Suspect]
     Active Substance: BISOPROLOL
     Indication: PRODUCT USED FOR UNKNOWN INDICATION
     Dosage: 5 MILLIGRAM, ONCE A DAY
  2. APYDAN DESITIN [Suspect]
     Active Substance: OXCARBAZEPINE
     Indication: PRODUCT USED FOR UNKNOWN INDICATION
     Dosage: 750 MG PER DAY
  3. LIXIANA [Suspect]
     Active Substance: EDOXABAN TOSYLATE
     Indication: CARDIAC PACEMAKER INSERTION
     Dosage: 30 MG PER DAY
     Route: 048
     Dates: start: 20180125

REACTIONS (4)
  - Off label use [Not Recovered/Not Resolved]
  - Heart rate increased [Recovered/Resolved]
  - Urine analysis abnormal [Unknown]
  - Heart rate irregular [Recovered/Resolved]

NARRATIVE: CASE EVENT DATE: 20180125
